FAERS Safety Report 5290941-8 (Version None)
Quarter: 2007Q2

REPORT INFORMATION
  Report Type: 
  Country: None (occurrence: None)
  Receive Date: 20070409
  Receipt Date: 20070326
  Transmission Date: 20071010
  Serious: Yes (Other)
  Sender: FDA-Public Use
  Company Number: US-PFIZER INC-2007025547

PATIENT
  Sex: Female
  Weight: 63.5 kg

DRUGS (5)
  1. CHANTIX [Suspect]
     Indication: SMOKING CESSATION THERAPY
     Dosage: FREQ:DAILY
     Dates: start: 20070101, end: 20070101
  2. NORVASC [Suspect]
     Indication: HYPERTENSION
  3. DRUG, UNSPECIFIED [Suspect]
  4. CLONAZEPAM [Concomitant]
  5. HYDROCODONE [Concomitant]
     Dates: end: 20070101

REACTIONS (7)
  - BLOOD POTASSIUM DECREASED [None]
  - FATIGUE [None]
  - HEADACHE [None]
  - HEART RATE DECREASED [None]
  - HYPERTENSION [None]
  - MALAISE [None]
  - MUSCLE SPASMS [None]
